FAERS Safety Report 7987447-1 (Version None)
Quarter: 2011Q4

REPORT INFORMATION
  Report Type: 
  Country: None (occurrence: None)
  Receive Date: 20111216
  Receipt Date: 20111028
  Transmission Date: 20120403
  Serious: No
  Sender: FDA-Public Use
  Company Number: US-BRISTOL-MYERS SQUIBB COMPANY-16203762

PATIENT
  Age: 14 Year
  Sex: Male
  Weight: 127 kg

DRUGS (3)
  1. VYVANSE [Concomitant]
  2. CLONIDINE [Concomitant]
  3. ABILIFY [Suspect]
     Dosage: ALSO RECEIVED 20MG

REACTIONS (3)
  - SOMNOLENCE [None]
  - AGGRESSION [None]
  - OVERDOSE [None]
